FAERS Safety Report 8427203-3 (Version None)
Quarter: 2012Q2

REPORT INFORMATION
  Report Type: 
  Country: None (occurrence: None)
  Receive Date: 20120611
  Receipt Date: 20120606
  Transmission Date: 20120825
  Serious: Yes (Hospitalization)
  Sender: FDA-Public Use
  Company Number: DE-AMGEN-DEUNI2012035703

PATIENT
  Age: 77 Year
  Sex: Male

DRUGS (1)
  1. ROMIPLOSTIM [Suspect]
     Indication: IDIOPATHIC THROMBOCYTOPENIC PURPURA
     Dosage: 780 MUG, QWK
     Route: 058
     Dates: start: 20111130

REACTIONS (1)
  - FEBRILE INFECTION [None]
